FAERS Safety Report 13347798 (Version 1)
Quarter: 2017Q1

REPORT INFORMATION
  Report Type: Spontaneous
  Country: BR (occurrence: BR)
  Receive Date: 20170317
  Receipt Date: 20170317
  Transmission Date: 20170428
  Serious: Yes (Other)
  Sender: FDA-Public Use
  Company Number: PHHY2017BR036267

PATIENT
  Sex: Female

DRUGS (1)
  1. SIMVASTATIN SANDOZ [Suspect]
     Active Substance: SIMVASTATIN
     Indication: BLOOD CHOLESTEROL
     Dosage: 20 MG, UNK
     Route: 048
     Dates: start: 20161026, end: 20161223

REACTIONS (8)
  - Arthralgia [Unknown]
  - Wrong technique in product usage process [Unknown]
  - Muscular weakness [Unknown]
  - Rash [Unknown]
  - Vascular pain [Unknown]
  - Dyspnoea [Unknown]
  - Nausea [Unknown]
  - Low density lipoprotein increased [Recovered/Resolved]
